FAERS Safety Report 8761772 (Version 2)
Quarter: 2012Q4

REPORT INFORMATION
  Report Type: Spontaneous
  Country: US (occurrence: None)
  Receive Date: 20120821
  Receipt Date: 20120829
  Transmission Date: 20130627
  Serious: Yes (Other)
  Sender: FDA-Public Use
  Company Number: AMAG201203081

PATIENT
  Age: 82 Year
  Sex: Female
  Weight: 130.2 kg

DRUGS (1)
  1. FERAHEME [Suspect]
     Indication: IRON DEFICIENCY ANEMIA
     Route: 042
     Dates: start: 20120802, end: 20120802

REACTIONS (3)
  - Anaphylactic reaction [None]
  - Bundle branch block right [None]
  - Blood pressure systolic increased [None]
